FAERS Safety Report 20567513 (Version 5)
Quarter: 2025Q1

REPORT INFORMATION
  Report Type: Report from Study
  Country: US (occurrence: US)
  Receive Date: 20220308
  Receipt Date: 20250311
  Transmission Date: 20250409
  Serious: Yes (Hospitalization, Other)
  Sender: TAKEDA
  Company Number: US-TAKEDA-US202022472

PATIENT
  Sex: Female

DRUGS (3)
  1. HUMAN IMMUNOGLOBULIN G [Suspect]
     Active Substance: HUMAN IMMUNOGLOBULIN G
     Indication: Selective IgG subclass deficiency
  2. HUMAN IMMUNOGLOBULIN G [Suspect]
     Active Substance: HUMAN IMMUNOGLOBULIN G
     Indication: Primary immunodeficiency syndrome
     Dosage: UNK UNK, MONTHLY
  3. HUMAN IMMUNOGLOBULIN G [Suspect]
     Active Substance: HUMAN IMMUNOGLOBULIN G
     Indication: Hypogammaglobulinaemia
     Dosage: 9 GRAM, 1/WEEK

REACTIONS (21)
  - Osteomyelitis [Unknown]
  - Gastric infection [Unknown]
  - Nervousness [Unknown]
  - Abdominal pain [Unknown]
  - Brain fog [Unknown]
  - Poor quality sleep [Unknown]
  - Fungal infection [Unknown]
  - Chronic granulomatous disease [Unknown]
  - Urinary tract infection [Unknown]
  - Neuralgia [Unknown]
  - Pain [Unknown]
  - Sinusitis [Unknown]
  - Lymphadenopathy [Unknown]
  - Headache [Unknown]
  - Nausea [Unknown]
  - Blood immunoglobulin G decreased [Unknown]
  - Liver function test abnormal [Unknown]
  - Fabry^s disease [Unknown]
  - COVID-19 [Unknown]
  - Infection [Recovering/Resolving]
  - Endometriosis [Unknown]
